FAERS Safety Report 12857762 (Version 2)
Quarter: 2016Q4

REPORT INFORMATION
  Report Type: Spontaneous
  Country: JP (occurrence: JP)
  Receive Date: 20161018
  Receipt Date: 20161118
  Transmission Date: 20170207
  Serious: Yes (Hospitalization, Other)
  Sender: FDA-Public Use
  Company Number: JP-BAXTER-2016BAX051909

PATIENT
  Sex: Female

DRUGS (1)
  1. DIANEAL [Suspect]
     Active Substance: CALCIUM CHLORIDE\DEXTROSE\MAGNESIUM CHLORIDE\SODIUM CHLORIDE\SODIUM LACTATE
     Indication: CHRONIC KIDNEY DISEASE
     Dosage: 1500 ML 4 PER 1 DAY
     Route: 033
     Dates: start: 201110

REACTIONS (3)
  - Breast cancer [Not Recovered/Not Resolved]
  - Urine output decreased [Not Recovered/Not Resolved]
  - Oncologic complication [Unknown]

NARRATIVE: CASE EVENT DATE: 2012
